FAERS Safety Report 4713374-9 (Version None)
Quarter: 2005Q3

REPORT INFORMATION
  Report Type: 
  Country: None (occurrence: None)
  Receive Date: 20050713
  Receipt Date: 20050707
  Transmission Date: 20060218
  Serious: Yes (Hospitalization)
  Sender: FDA-Public Use
  Company Number: NL-SANOFI-SYNTHELABO-F01200501223

PATIENT
  Sex: Female

DRUGS (4)
  1. OXALIPLATIN [Suspect]
     Indication: COLON CANCER
     Route: 041
     Dates: start: 20040804, end: 20040804
  2. CAPECITABINE [Suspect]
     Indication: COLON CANCER
     Route: 048
     Dates: start: 20040804
  3. LEVONORGESTREL AND ETHINYL ESTRADIOL [Concomitant]
     Route: 048
  4. DURAGESIC-100 [Concomitant]
     Route: 048

REACTIONS (3)
  - LARYNGOSPASM [None]
  - NAUSEA [None]
  - VOMITING [None]
